FAERS Safety Report 7764598-8 (Version None)
Quarter: 2011Q3

REPORT INFORMATION
  Report Type: 
  Country: None (occurrence: None)
  Receive Date: 20110921
  Receipt Date: 20110906
  Transmission Date: 20111222
  Serious: Yes (Other)
  Sender: FDA-Public Use
  Company Number: PHHY2011JP70992

PATIENT
  Sex: Female
  Weight: 2.89 kg

DRUGS (4)
  1. DIOVAN [Suspect]
     Indication: HYPERTENSION
     Dosage: UNK UKN, UNK
     Route: 064
     Dates: end: 20110501
  2. ATELEC [Concomitant]
  3. ALDOMET [Concomitant]
     Dates: start: 20110516
  4. TANATRIL [Suspect]
     Dosage: UNK UKN, UNK
     Route: 064
     Dates: start: 20110501, end: 20110516

REACTIONS (6)
  - CONGENITAL CYSTIC KIDNEY DISEASE [None]
  - KIDNEY ENLARGEMENT [None]
  - BLOOD CREATININE INCREASED [None]
  - MATERNAL EXPOSURE DURING PREGNANCY [None]
  - RENAL IMPAIRMENT [None]
  - RENAL FAILURE NEONATAL [None]
